FAERS Safety Report 18760949 (Version 1)
Quarter: 2021Q1

REPORT INFORMATION
  Report Type: Spontaneous
  Country: JP (occurrence: JP)
  Receive Date: 20210119
  Receipt Date: 20210119
  Transmission Date: 20210419
  Serious: Yes (Other)
  Sender: FDA-Public Use
  Company Number: JP-TOLMAR, INC.-21JP024949

PATIENT

DRUGS (1)
  1. CLOBETASOL PROPIONATE. [Suspect]
     Active Substance: CLOBETASOL PROPIONATE
     Indication: ALOPECIA AREATA
     Dosage: UNK, QD
     Route: 065

REACTIONS (1)
  - Open angle glaucoma [Unknown]
